FAERS Safety Report 9336910 (Version 1)
Quarter: 2013Q2

REPORT INFORMATION
  Report Type: Spontaneous
  Country: CO (occurrence: CO)
  Receive Date: 20130607
  Receipt Date: 20130607
  Transmission Date: 20140414
  Serious: Yes (Death, Hospitalization, Other)
  Sender: FDA-Public Use
  Company Number: CO-PFIZER INC-2013172448

PATIENT
  Age: 49 Year
  Sex: Female

DRUGS (3)
  1. LYRICA [Suspect]
     Dosage: 75 MG, 1X/DAY
     Route: 048
     Dates: start: 20130430, end: 201305
  2. LOVASTATIN [Concomitant]
     Dosage: UNK
     Route: 048
     Dates: start: 2008, end: 201305
  3. LEFLUNOMIDE [Concomitant]
     Dosage: UNK
     Route: 048
     Dates: start: 2008, end: 201305

REACTIONS (6)
  - Cardiac arrest [Fatal]
  - Depression [Unknown]
  - Walking disability [Unknown]
  - Lacrimation increased [Unknown]
  - Breath odour [Unknown]
  - Decreased appetite [Unknown]
